FAERS Safety Report 6875255-4 (Version None)
Quarter: 2010Q3

REPORT INFORMATION
  Report Type: 
  Country: None (occurrence: None)
  Receive Date: 20100727
  Receipt Date: 20100713
  Transmission Date: 20110219
  Serious: No
  Sender: FDA-Public Use
  Company Number: FR-JNJFOC-20100704736

PATIENT
  Sex: Male

DRUGS (5)
  1. DURAGESIC-100 [Suspect]
     Indication: PAIN
     Route: 062
  2. DURAGESIC-100 [Suspect]
     Dosage: FROM 1 TO 3 PATCHS PER DAY
     Route: 062
  3. DURAGESIC-100 [Suspect]
     Route: 062
  4. ACTIQ [Suspect]
     Indication: PAIN
     Dosage: AS NEEDED WITHOUT EXCEEDING 8 LOZENGES PER DAY
     Route: 048
  5. REBIF [Concomitant]

REACTIONS (4)
  - DRUG INEFFECTIVE [None]
  - DRUG PRESCRIBING ERROR [None]
  - OFF LABEL USE [None]
  - OVERDOSE [None]
